FAERS Safety Report 14756787 (Version 2)
Quarter: 2021Q1

REPORT INFORMATION
  Report Type: Spontaneous
  Country: FR (occurrence: FR)
  Receive Date: 20180413
  Receipt Date: 20210316
  Transmission Date: 20210419
  Serious: Yes (Hospitalization, Other)
  Sender: FDA-Public Use
  Company Number: FR-AUROBINDO-AUR-APL-2018-019812

PATIENT
  Age: 14 Year
  Sex: Female
  Weight: 39 kg

DRUGS (9)
  1. CASPOFUNGIN [Concomitant]
     Active Substance: CASPOFUNGIN
     Indication: PRODUCT USED FOR UNKNOWN INDICATION
     Dosage: 50 MILLIGRAM
     Route: 065
  2. VORICONAZOLE. [Suspect]
     Active Substance: VORICONAZOLE
     Indication: BRONCHOPULMONARY ASPERGILLOSIS
     Dosage: 300 MILLIGRAM (DOSE: SO AS TO KEEP THE TROUGH CONCENTRATION BETWEEN 1.5?5.5MG/L)
     Route: 041
  3. METHOTREXATE. [Concomitant]
     Active Substance: METHOTREXATE
     Indication: PRODUCT USED FOR UNKNOWN INDICATION
     Dosage: 5 5 G/M2 OVER 24 HOURS
     Route: 041
  4. VINCRISTINE [Interacting]
     Active Substance: VINCRISTINE
     Indication: ACUTE LYMPHOCYTIC LEUKAEMIA
     Dosage: ACTION TAKEN: DOSE REDUCED AND THEN THERAPY CONTINUED. ROUTE: INFUSION
     Route: 050
  5. VORICONAZOLE. [Suspect]
     Active Substance: VORICONAZOLE
     Dosage: 15 MILLIGRAM/KILOGRAM
     Route: 042
  6. VORICONAZOLE. [Suspect]
     Active Substance: VORICONAZOLE
     Dosage: 7.5 MILLIGRAM/KILOGRAM
     Route: 048
  7. VINCRISTINE [Interacting]
     Active Substance: VINCRISTINE
     Dosage: 1.5 MILLIGRAM
     Route: 065
  8. VORICONAZOLE. [Suspect]
     Active Substance: VORICONAZOLE
     Dosage: 8.5 MILLIGRAM/KILOGRAM
     Route: 048
  9. VINCRISTINE [Interacting]
     Active Substance: VINCRISTINE
     Dosage: 2 MILLIGRAM
     Route: 065

REACTIONS (13)
  - Condition aggravated [Unknown]
  - Bronchopulmonary aspergillosis [Recovering/Resolving]
  - Disorientation [Recovering/Resolving]
  - Musculoskeletal pain [Unknown]
  - Inflammation [Unknown]
  - Neuralgia [Recovering/Resolving]
  - Hallucinations, mixed [Recovered/Resolved]
  - Confusional state [Recovering/Resolving]
  - Respiratory distress [Unknown]
  - Encephalopathy [Recovered/Resolved]
  - Electric shock [Unknown]
  - Drug interaction [Recovering/Resolving]
  - Hypoaesthesia [Unknown]
